FAERS Safety Report 5420771-5 (Version None)
Quarter: 2007Q3

REPORT INFORMATION
  Report Type: 
  Country: None (occurrence: None)
  Receive Date: 20070816
  Receipt Date: 20070809
  Transmission Date: 20080115
  Serious: Yes (Death)
  Sender: FDA-Public Use
  Company Number: 2007SP012987

PATIENT
  Age: 67 Year
  Sex: Female

DRUGS (4)
  1. TEMODAL [Suspect]
     Indication: GLIOBLASTOMA
     Dosage: 75 MG/M2; QD; PO
     Route: 048
     Dates: start: 20070419, end: 20070531
  2. ZOFRAN [Concomitant]
  3. BACTRIM DS [Concomitant]
  4. SOLU-MEDROL [Concomitant]

REACTIONS (4)
  - APLASIA [None]
  - BONE MARROW FAILURE [None]
  - INFECTION [None]
  - PANCYTOPENIA [None]
